FAERS Safety Report 25008474 (Version 1)
Quarter: 2025Q1

REPORT INFORMATION
  Report Type: Spontaneous
  Country: US (occurrence: None)
  Receive Date: 20250225
  Receipt Date: 20250225
  Transmission Date: 20250409
  Serious: Yes (Hospitalization)
  Sender: FDA-CTU
  Company Number: None

PATIENT
  Age: 55 Year
  Sex: Male
  Weight: 90.5 kg

DRUGS (3)
  1. FLUOROURACIL [Suspect]
     Active Substance: FLUOROURACIL
  2. LEUCOVORIN CALCIUM [Suspect]
     Active Substance: LEUCOVORIN CALCIUM
  3. ELOXATIN [Suspect]
     Active Substance: OXALIPLATIN

REACTIONS (17)
  - Dizziness [None]
  - Diarrhoea [None]
  - Liver function test increased [None]
  - Abdominal pain lower [None]
  - Therapy cessation [None]
  - Abdominal discomfort [None]
  - Nausea [None]
  - Decreased appetite [None]
  - Hypotension [None]
  - Metabolic acidosis [None]
  - Blood lactic acid increased [None]
  - Hyperbilirubinaemia [None]
  - Septic shock [None]
  - Colitis [None]
  - Portal hypertension [None]
  - Renal failure [None]
  - Thrombocytopenia [None]

NARRATIVE: CASE EVENT DATE: 20250131
